FAERS Safety Report 7030513-8 (Version None)
Quarter: 2010Q4

REPORT INFORMATION
  Report Type: 
  Country: None (occurrence: None)
  Receive Date: 20101006
  Receipt Date: 20100929
  Transmission Date: 20110411
  Serious: Yes (Hospitalization)
  Sender: FDA-Public Use
  Company Number: IT-JNJFOC-20100908635

PATIENT
  Sex: Female

DRUGS (15)
  1. LEVOXACIN [Suspect]
     Indication: PSEUDOMONAS INFECTION
     Dosage: 1 UNIT
     Route: 042
  2. FLUCONAZOLE [Concomitant]
     Route: 065
  3. INSULIN [Concomitant]
     Route: 065
  4. LASIX [Concomitant]
     Route: 065
  5. ALBUMIN (HUMAN) [Concomitant]
     Route: 065
  6. CLEXANE [Concomitant]
     Route: 065
  7. ZYLORIC [Concomitant]
     Route: 065
  8. NEXIUM [Concomitant]
     Route: 065
  9. ALDACTONE [Concomitant]
     Route: 065
  10. PLASIL [Concomitant]
     Route: 065
  11. CORDARONE [Concomitant]
     Route: 065
  12. BISOPROLOL [Concomitant]
     Route: 065
  13. ASPIRIN [Concomitant]
     Route: 065
  14. TRIATEC [Concomitant]
     Route: 065
  15. LANTUS [Concomitant]
     Route: 065

REACTIONS (2)
  - EYE MOVEMENT DISORDER [None]
  - GRAND MAL CONVULSION [None]
